FAERS Safety Report 6942088-X (Version None)
Quarter: 2010Q3

REPORT INFORMATION
  Report Type: 
  Country: None (occurrence: None)
  Receive Date: 20100826
  Receipt Date: 20100816
  Transmission Date: 20110219
  Serious: Yes (Hospitalization)
  Sender: FDA-Public Use
  Company Number: US-ELI_LILLY_AND_COMPANY-US201008005582

PATIENT
  Sex: Female
  Weight: 93.4 kg

DRUGS (11)
  1. PEMETREXED [Suspect]
     Indication: NON-SMALL CELL LUNG CANCER
     Dosage: 500 MG/M2, (985MG) DAY 1 EVERY 21 DAYS
     Route: 042
     Dates: start: 20100716
  2. CARBOPLATIN [Suspect]
     Indication: NON-SMALL CELL LUNG CANCER
     Dosage: 6 AUC (786MG) DAY 1 EVERY 21 DAYS
     Route: 042
     Dates: start: 20100716
  3. BEVACIZUMAB [Suspect]
     Indication: NON-SMALL CELL LUNG CANCER
     Dosage: 15 MG/KG,(1463MG) DAY 1 EVERY 21 DAYS
     Route: 042
     Dates: start: 20100716
  4. METFORMIN HCL [Concomitant]
     Indication: DIABETES MELLITUS
  5. DIOVAN [Concomitant]
     Indication: HYPERTENSION
  6. ALENDRONATE SODIUM [Concomitant]
     Indication: OSTEOPOROSIS
  7. HYDROCHLOROTHIAZIDE [Concomitant]
     Indication: HYPERTENSION
  8. BUPROPION [Concomitant]
     Indication: DEPRESSION
  9. SIMVASTATIN [Concomitant]
     Indication: HYPERLIPIDAEMIA
  10. ZOFRAN [Concomitant]
     Indication: NAUSEA
  11. DECADRON [Concomitant]
     Indication: PROPHYLAXIS
     Dates: start: 20100804, end: 20100806

REACTIONS (1)
  - HYPOTENSION [None]
